FAERS Safety Report 9123793 (Version 3)
Quarter: 2013Q1

REPORT INFORMATION
  Report Type: Spontaneous
  Country: US (occurrence: US)
  Receive Date: 20130116
  Receipt Date: 20130327
  Transmission Date: 20140127
  Serious: Yes (Hospitalization)
  Sender: FDA-Public Use
  Company Number: US-PFIZER INC-2013016760

PATIENT
  Sex: Female

DRUGS (2)
  1. LYRICA [Suspect]
     Indication: PAIN
     Dosage: UNK, FOR THREE WEEKS
  2. LYRICA [Suspect]
     Indication: FIBROMYALGIA

REACTIONS (4)
  - Gait disturbance [Unknown]
  - Urinary incontinence [Unknown]
  - Hallucination [Unknown]
  - Abnormal behaviour [Unknown]
